FAERS Safety Report 8517237-2 (Version None)
Quarter: 2012Q3

REPORT INFORMATION
  Report Type: 
  Country: None (occurrence: None)
  Receive Date: 20120718
  Receipt Date: 20120709
  Transmission Date: 20120928
  Serious: Yes (Life-Threatening, Hospitalization)
  Sender: FDA-Public Use
  Company Number: DE-SANOFI-AVENTIS-2012SA049771

PATIENT
  Age: 50 Year
  Sex: Male
  Weight: 107 kg

DRUGS (2)
  1. OXALIPLATIN [Suspect]
     Route: 042
     Dates: start: 20120619, end: 20120619
  2. CETUXIMAB [Concomitant]
     Indication: COLORECTAL CANCER
     Route: 042
     Dates: start: 20120619, end: 20120619

REACTIONS (3)
  - RENAL FAILURE ACUTE [None]
  - PAIN [None]
  - EXTRAVASCULAR HAEMOLYSIS [None]
